FAERS Safety Report 6104305-8 (Version None)
Quarter: 2009Q1

REPORT INFORMATION
  Report Type: 
  Country: None (occurrence: None)
  Receive Date: 20090305
  Receipt Date: 20090222
  Transmission Date: 20090719
  Serious: Yes (Death, Hospitalization, Other)
  Sender: FDA-Public Use
  Company Number: US-ELI_LILLY_AND_COMPANY-US200810001331

PATIENT
  Age: 72 Year
  Sex: Female

DRUGS (10)
  1. FORTEO [Suspect]
     Indication: OSTEOPOROSIS
     Dosage: 20 UG, DAILY (1/D)
     Dates: start: 20060331, end: 20061001
  2. ADVAIR HFA [Concomitant]
     Indication: ASTHMA
     Dosage: UNK, 2/D
  3. SPIRIVA [Concomitant]
     Indication: ASTHMA
  4. CARDIAZEM [Concomitant]
     Indication: ATRIAL FIBRILLATION
     Dosage: 120 MG, DAILY (1/D)
  5. SINEMET [Concomitant]
     Indication: PARKINSON'S DISEASE
     Dosage: UNK, 4/D
  6. COMTAN [Concomitant]
     Indication: PARKINSON'S DISEASE
     Dosage: 200 MG, 2/D
  7. MIRAPEX [Concomitant]
     Indication: PARKINSON'S DISEASE
     Dosage: 1 MG, 3/D
  8. NEXIUM [Concomitant]
     Indication: GASTROOESOPHAGEAL REFLUX DISEASE
     Dosage: UNK, DAILY (1/D)
  9. LOSARTAN [Concomitant]
     Indication: HYPERLIPIDAEMIA
     Dosage: 20 MG, DAILY (1/D)
  10. FLECAINIDE ACETATE [Concomitant]

REACTIONS (5)
  - BACK PAIN [None]
  - CARDIAC ARREST [None]
  - DYSPNOEA [None]
  - LOSS OF CONSCIOUSNESS [None]
  - SYNCOPE [None]
